FAERS Safety Report 7531610-0 (Version None)
Quarter: 2011Q2

REPORT INFORMATION
  Report Type: 
  Country: None (occurrence: None)
  Receive Date: 20110608
  Receipt Date: 20090112
  Transmission Date: 20111010
  Serious: Yes (Other)
  Sender: FDA-Public Use
  Company Number: US-BAYER-200910314NA

PATIENT
  Age: 51 Year
  Sex: Male
  Weight: 110 kg

DRUGS (13)
  1. GLIPIZIDE [Concomitant]
     Dosage: 5 MG, UNK
     Route: 048
  2. LISINOPRIL [Concomitant]
     Dosage: 20 MG, UNK
     Route: 048
  3. PRANDIN [Concomitant]
     Dosage: 1 MG, UNK
     Route: 048
  4. VANCOMYCIN [Concomitant]
     Dosage: 1500 MG, UNK
     Route: 042
     Dates: start: 20060213, end: 20060213
  5. HEPARIN [Concomitant]
     Dosage: 4000 U, UNK
     Route: 042
     Dates: start: 20060213, end: 20060213
  6. LIPITOR [Concomitant]
     Dosage: 40 MG, UNK
     Route: 048
  7. CEFAZOLIN [Concomitant]
     Dosage: 2 G, UNK
     Route: 042
     Dates: start: 20060213, end: 20060213
  8. PLAVIX [Concomitant]
     Dosage: 75 MG, UNK
     Route: 048
  9. TRASYLOL [Suspect]
     Indication: CORONARY ARTERY BYPASS
     Dosage: UNK
     Route: 042
     Dates: start: 20061013
  10. LOPRESSOR [Concomitant]
     Dosage: 50 MG, UNK
     Route: 048
  11. ACETYLSALICYLIC ACID SRT [Concomitant]
     Dosage: 81 MG, UNK
     Route: 048
  12. CAPOTEN [Concomitant]
     Dosage: 25 MG, UNK
     Route: 048
  13. NOVOLIN [INSULIN] [Concomitant]
     Dosage: UNK
     Route: 058

REACTIONS (9)
  - ANXIETY [None]
  - UNEVALUABLE EVENT [None]
  - EMOTIONAL DISTRESS [None]
  - FEAR [None]
  - STRESS [None]
  - PAIN [None]
  - RENAL IMPAIRMENT [None]
  - RENAL FAILURE [None]
  - RENAL INJURY [None]
